FAERS Safety Report 6160629-X (Version None)
Quarter: 2009Q2

REPORT INFORMATION
  Report Type: 
  Country: None (occurrence: None)
  Receive Date: 20090416
  Receipt Date: 20090403
  Transmission Date: 20091009
  Serious: No
  Sender: FDA-Public Use
  Company Number: SPI200900111

PATIENT
  Age: 16 Year
  Sex: Female
  Weight: 54.4 kg

DRUGS (2)
  1. AMITIZA [Suspect]
     Indication: CONSTIPATION
     Dosage: 24 MCG, QD
     Dates: start: 20090225, end: 20090307
  2. PROMETHAZINE [Suspect]
     Indication: NAUSEA
     Dosage: ORAL
     Route: 048

REACTIONS (1)
  - DYSPNOEA [None]
